FAERS Safety Report 22064625 (Version 1)
Quarter: 2023Q1

REPORT INFORMATION
  Report Type: Spontaneous
  Country: US (occurrence: None)
  Receive Date: 20230303
  Receipt Date: 20230303
  Transmission Date: 20230417
  Serious: Yes (Hospitalization)
  Sender: FDA-Public Use
  Company Number: None

PATIENT
  Age: 62 Year
  Sex: Female
  Weight: 98.1 kg

DRUGS (4)
  1. NEXLIZET [Suspect]
     Active Substance: BEMPEDOIC ACID\EZETIMIBE
     Indication: Hyperlipidaemia
     Dosage: FREQUENCY : DAILY;?
     Route: 048
     Dates: start: 20221219, end: 20230113
  2. Candesartan 6mg daily [Concomitant]
     Dates: start: 20220410
  3. Mounjaro once weekly 5mg [Concomitant]
     Dates: start: 20221219
  4. Sertraline 25mg daily [Concomitant]
     Dates: start: 20221216

REACTIONS (5)
  - Arthralgia [None]
  - Joint swelling [None]
  - Drug ineffective [None]
  - Meniscus injury [None]
  - Ligament rupture [None]

NARRATIVE: CASE EVENT DATE: 20230113
